FAERS Safety Report 9805354 (Version 3)
Quarter: 2014Q2

REPORT INFORMATION
  Report Type: Spontaneous
  Country: US (occurrence: US)
  Receive Date: 20140109
  Receipt Date: 20140515
  Transmission Date: 20141212
  Serious: Yes (Other)
  Sender: FDA-Public Use
  Company Number: US-JNJFOC-20140101256

PATIENT
  Sex: Female
  Weight: 76.66 kg

DRUGS (28)
  1. SIMPONI [Suspect]
     Indication: PSORIASIS
     Dosage: PRODUCT WAS STARTED ABOUT 1.5 YEARS AGO
     Route: 058
  2. SIMPONI [Suspect]
     Indication: PSORIATIC ARTHROPATHY
     Dosage: PRODUCT WAS STARTED ABOUT 1.5 YEARS AGO
     Route: 058
  3. NUVIGIL [Concomitant]
     Route: 048
  4. VACCINIUM MACROCARPON [Concomitant]
     Route: 065
  5. LEVOXYL [Concomitant]
     Route: 048
  6. METAXALONE [Concomitant]
     Indication: MYALGIA
     Route: 048
  7. METOLAZONE [Concomitant]
     Route: 048
  8. METOPROLOL SUCCINATE [Concomitant]
     Route: 048
  9. NUCYNTA [Concomitant]
     Route: 065
  10. PANTOPRAZOLE [Concomitant]
     Route: 048
  11. POTASSIUM CHLORIDE [Concomitant]
     Dosage: 18 CAPSULES
     Route: 065
  12. PROMETHAZINE [Concomitant]
     Dosage: 1 TABLET
     Route: 048
  13. VESICARE [Concomitant]
     Dosage: 1 TABLET
     Route: 048
  14. SPIRONOLACTONE [Concomitant]
     Route: 048
  15. VITAMIN D [Concomitant]
     Route: 065
  16. CYMBALTA [Concomitant]
     Route: 065
  17. COSOPT [Concomitant]
     Dosage: 0.5%-2.0%
     Route: 065
  18. ALLEGRA [Concomitant]
     Route: 048
  19. SYNTHROID [Concomitant]
     Route: 058
  20. SYNTHROID [Concomitant]
     Route: 048
  21. NYSTATIN [Concomitant]
     Route: 065
  22. RISPERDAL [Concomitant]
     Route: 065
  23. VESICARE [Concomitant]
     Dosage: 10 MILLIGRAMS
     Route: 065
  24. TORSEMIDE [Concomitant]
     Dosage: 20 MILLIGRAMS
     Route: 048
  25. MULTIVITAMINS [Concomitant]
     Route: 048
  26. LIDOCAINE [Concomitant]
     Route: 065
  27. NUCYNTA [Concomitant]
     Route: 065
  28. SKELAXIN [Concomitant]
     Dosage: 1-2 QD
     Route: 065

REACTIONS (4)
  - Glaucoma [Not Recovered/Not Resolved]
  - Respiratory tract infection [Unknown]
  - Psoriatic arthropathy [Unknown]
  - Device malfunction [Unknown]
